FAERS Safety Report 15688838 (Version 2)
Quarter: 2018Q4

REPORT INFORMATION
  Report Type: Spontaneous
  Country: SE (occurrence: SE)
  Receive Date: 20181205
  Receipt Date: 20181212
  Transmission Date: 20190205
  Serious: Yes (Other)
  Sender: FDA-Public Use
  Company Number: SE-ASTRAZENECA-2018SF58974

PATIENT
  Age: 78 Year
  Sex: Female

DRUGS (5)
  1. OXIS [Suspect]
     Active Substance: FORMOTEROL FUMARATE
     Dosage: UNK
     Route: 055
  2. ELIQUIS [Suspect]
     Active Substance: APIXABAN
     Indication: CEREBROVASCULAR ACCIDENT PROPHYLAXIS
     Dosage: 5 MG, DAILY
     Route: 048
     Dates: start: 20140604, end: 20141120
  3. PULMICORT TURBUHALER [Suspect]
     Active Substance: BUDESONIDE
     Dosage: UNK
     Route: 055
  4. VESICARE [Concomitant]
     Active Substance: SOLIFENACIN SUCCINATE
     Dosage: UNK
     Route: 065
  5. SALURES [Suspect]
     Active Substance: BENDROFLUMETHIAZIDE
     Dosage: 2.5 MG, 1X/DAY
     Route: 065
     Dates: start: 20141021

REACTIONS (2)
  - Pneumonia [Unknown]
  - Depression [Recovered/Resolved]

NARRATIVE: CASE EVENT DATE: 2014
